FAERS Safety Report 6340436-5 (Version None)
Quarter: 2009Q3

REPORT INFORMATION
  Report Type: 
  Country: None (occurrence: None)
  Receive Date: 20090904
  Receipt Date: 20070618
  Transmission Date: 20100115
  Serious: Yes (Other)
  Sender: FDA-Public Use
  Company Number: US-ASTRAZENECA-2006UW12037

PATIENT
  Age: 10156 Day
  Sex: Female

DRUGS (17)
  1. SEROQUEL [Suspect]
     Indication: SCHIZOPHRENIA
     Route: 048
     Dates: start: 20030222, end: 20030101
  2. SEROQUEL [Suspect]
     Indication: BIPOLAR DISORDER
     Route: 048
     Dates: start: 20030222, end: 20030101
  3. SEROQUEL [Suspect]
     Indication: DEPRESSION
     Route: 048
     Dates: start: 20030222, end: 20030101
  4. ABILIFY [Concomitant]
     Dates: start: 20000101
  5. CLOZARIL [Concomitant]
     Dates: start: 20000101
  6. GEODON [Concomitant]
     Dates: start: 20000101
  7. HALDOL [Concomitant]
     Dates: start: 20000101
  8. NAVANE [Concomitant]
     Dates: start: 20000101
  9. RISPERDAL [Concomitant]
     Dates: start: 20000101
  10. SOLIAN [Concomitant]
  11. STELAZINE [Concomitant]
     Dates: start: 20000101
  12. THORAZINE [Concomitant]
     Dates: start: 20000101
  13. TRILAFON [Concomitant]
     Dates: start: 20000101
  14. ZYPREXA [Concomitant]
     Dates: start: 20000101
  15. NIFEDIPINE [Concomitant]
     Route: 048
     Dates: start: 20030222
  16. LITHIUM CARBONATE [Concomitant]
     Dates: start: 20030222
  17. PRENATAL [Concomitant]
     Dosage: ONE TABLET EVERYDAY
     Route: 048
     Dates: start: 20030223

REACTIONS (13)
  - BLOOD TRIGLYCERIDES INCREASED [None]
  - DIABETIC KETOACIDOSIS [None]
  - DIABETIC NEUROPATHY [None]
  - DRUG EXPOSURE DURING PREGNANCY [None]
  - EXTRAPYRAMIDAL DISORDER [None]
  - GESTATIONAL DIABETES [None]
  - HYPERLIPIDAEMIA [None]
  - HYPERPROLACTINAEMIA [None]
  - NEUROLEPTIC MALIGNANT SYNDROME [None]
  - OBESITY [None]
  - PANCREATITIS [None]
  - TARDIVE DYSKINESIA [None]
  - TYPE 2 DIABETES MELLITUS [None]
